FAERS Safety Report 17025388 (Version 1)
Quarter: 2019Q4

REPORT INFORMATION
  Report Type: Report from Study
  Country: US (occurrence: US)
  Receive Date: 20191113
  Receipt Date: 20191113
  Transmission Date: 20200122
  Serious: Yes (Other)
  Sender: FDA-Public Use
  Company Number: US-MYLANLABS-2019M1108810

PATIENT
  Age: 3 Month

DRUGS (2)
  1. ZIDOVUDINE. [Suspect]
     Active Substance: ZIDOVUDINE
     Indication: PERINATAL HIV INFECTION
     Dosage: RECEIVED DURING THE FIRST 8 DAYS OF LIFE
     Route: 065
  2. NEVIRAPINE. [Suspect]
     Active Substance: NEVIRAPINE
     Indication: PERINATAL HIV INFECTION
     Dosage: RECEIVED DURING THE FIRST 8 DAYS OF LIFE
     Route: 065

REACTIONS (1)
  - Pathogen resistance [Unknown]
